FAERS Safety Report 4757995-6 (Version None)
Quarter: 2005Q3

REPORT INFORMATION
  Report Type: 
  Country: None (occurrence: None)
  Receive Date: 20050826
  Receipt Date: 20050511
  Transmission Date: 20060218
  Serious: No
  Sender: FDA-Public Use
  Company Number: WAES 0504USA01481

PATIENT
  Age: 81 Year
  Sex: Female
  Weight: 57.6068 kg

DRUGS (8)
  1. ZETIA [Suspect]
     Indication: BLOOD CHOLESTEROL INCREASED
     Dosage: 10 MG/DAILY/PO
     Route: 048
     Dates: start: 20050328, end: 20050402
  2. ZETIA [Suspect]
     Indication: HYPERLIPIDAEMIA
     Dosage: 10 MG/DAILY/PO
     Route: 048
     Dates: start: 20050328, end: 20050402
  3. ALTACE [Concomitant]
  4. CITRICAL [Concomitant]
  5. GAVISCON ANTACID TABLETS [Concomitant]
  6. GNC GLUCOSAMINE CHONDROTIN [Concomitant]
  7. DIAZEPAM [Concomitant]
  8. MAGNESIUM [Concomitant]

REACTIONS (2)
  - LETHARGY [None]
  - MYALGIA [None]
